FAERS Safety Report 9612589 (Version 3)
Quarter: 2013Q4

REPORT INFORMATION
  Report Type: Spontaneous
  Country: US (occurrence: US)
  Receive Date: 20131010
  Receipt Date: 20131206
  Transmission Date: 20140711
  Serious: Yes (Other)
  Sender: FDA-Public Use
  Company Number: US-PFIZER INC-2013286680

PATIENT
  Sex: Female

DRUGS (3)
  1. LIPITOR [Suspect]
     Dosage: 10 MG, UNK
  2. PREMARIN [Suspect]
     Dosage: 0.625 MG, UNK
  3. ALDACTONE [Suspect]
     Dosage: 25 MG, UNK

REACTIONS (2)
  - Fall [Unknown]
  - Wrist fracture [Unknown]
